FAERS Safety Report 8119881-3 (Version None)
Quarter: 2012Q1

REPORT INFORMATION
  Report Type: 
  Country: None (occurrence: None)
  Receive Date: 20120206
  Receipt Date: 20120206
  Transmission Date: 20120608
  Serious: Yes (Other)
  Sender: FDA-Public Use
  Company Number: None

PATIENT
  Age: 58 Year
  Sex: Female
  Weight: 67.1324 kg

DRUGS (5)
  1. AMBIEN [Concomitant]
  2. VACYCLOVAR [Concomitant]
  3. LAMOTRIGINE [Suspect]
     Indication: DEPRESSION
     Dosage: 150 MG 1 X DAY PO  75MG 1XD AUG-}NOV 11; 150MG 1XD NOV - JAN12
     Route: 048
  4. CELEXA [Concomitant]
  5. OMEPRAZOLE [Concomitant]

REACTIONS (13)
  - ACNE [None]
  - HEADACHE [None]
  - PALPITATIONS [None]
  - NAIL DISORDER [None]
  - CLUMSINESS [None]
  - CYST [None]
  - URTICARIA [None]
  - COGNITIVE DISORDER [None]
  - PYREXIA [None]
  - DYSGRAPHIA [None]
  - CONFUSIONAL STATE [None]
  - BLISTER [None]
  - RASH [None]
